FAERS Safety Report 9571493 (Version 2)
Quarter: 2013Q4

REPORT INFORMATION
  Report Type: Spontaneous
  Country: US (occurrence: US)
  Receive Date: 20131001
  Receipt Date: 20131001
  Transmission Date: 20140711
  Serious: Yes (Hospitalization, Other)
  Sender: FDA-Public Use
  Company Number: US-PFIZER INC-2013129759

PATIENT
  Age: 69 Year
  Sex: Male

DRUGS (9)
  1. DILANTIN [Suspect]
     Indication: CONVULSION
     Dosage: 100 MG, 3X/DAY
     Route: 048
     Dates: start: 20060312, end: 20060317
  2. HYDROCHLOROTHIAZIDE [Concomitant]
     Dosage: 50 MG, UNK
  3. PHENOBARBITAL [Concomitant]
     Indication: CONVULSION
     Dosage: 60 MG, 2X/DAY
  4. ATENOLOL [Concomitant]
     Dosage: 50 MG, UNK
  5. ASPIRIN [Concomitant]
     Dosage: 325 MG, UNK
     Route: 048
  6. VALIUM [Concomitant]
     Dosage: 5 MG, 3X/DAY
  7. RESTORIL [Concomitant]
     Dosage: 30 MG, UNK
  8. LOPRESSOR [Concomitant]
     Dosage: 100 MG, 2X/DAY
     Route: 048
  9. ZOSYN [Concomitant]
     Dosage: UNK

REACTIONS (2)
  - Stevens-Johnson syndrome [Recovered/Resolved]
  - Toxic epidermal necrolysis [Recovered/Resolved]
